FAERS Safety Report 4489086-6 (Version None)
Quarter: 2004Q4

REPORT INFORMATION
  Report Type: 
  Country: None (occurrence: None)
  Receive Date: 20041029
  Receipt Date: 20041006
  Transmission Date: 20050328
  Serious: Yes (Death)
  Sender: FDA-Public Use
  Company Number: AT-ROCHE-382420

PATIENT
  Age: 78 Year
  Sex: Female
  Weight: 60 kg

DRUGS (5)
  1. CAPECITABINE [Suspect]
     Route: 048
     Dates: start: 20040824, end: 20040914
  2. BEVACIZUMAB [Suspect]
     Route: 042
     Dates: start: 20040824, end: 20040914
  3. OXALIPLATIN [Suspect]
     Route: 042
     Dates: start: 20040824, end: 20040914
  4. DILTIAZEM HCL [Concomitant]
     Route: 048
     Dates: start: 19840615
  5. ATORVASTATIN CALCIUM [Concomitant]
     Route: 048
     Dates: start: 19940615

REACTIONS (21)
  - ACTIVATED PARTIAL THROMBOPLASTIN TIME PROLONGED [None]
  - BLOOD CHOLINESTERASE DECREASED [None]
  - BLOOD CREATININE INCREASED [None]
  - BLOOD FIBRINOGEN INCREASED [None]
  - BLOOD GLUCOSE INCREASED [None]
  - BLOOD UREA INCREASED [None]
  - DIARRHOEA [None]
  - DYSPNOEA [None]
  - EMBOLISM [None]
  - FIBRIN D DIMER INCREASED [None]
  - GENERAL PHYSICAL HEALTH DETERIORATION [None]
  - HAEMATOCRIT DECREASED [None]
  - HAEMOGLOBIN DECREASED [None]
  - ILEUS PARALYTIC [None]
  - MEAN CELL HAEMOGLOBIN CONCENTRATION INCREASED [None]
  - MEAN CELL HAEMOGLOBIN DECREASED [None]
  - MEAN CELL VOLUME DECREASED [None]
  - PROTEIN TOTAL DECREASED [None]
  - PROTHROMBIN TIME SHORTENED [None]
  - RESPIRATORY FAILURE [None]
  - VERTIGO [None]
